FAERS Safety Report 24614424 (Version 1)
Quarter: 2024Q4

REPORT INFORMATION
  Report Type: Report from Study
  Country: US (occurrence: US)
  Receive Date: 20241113
  Receipt Date: 20241113
  Transmission Date: 20250115
  Serious: No
  Sender: DR REDDYS
  Company Number: US-DRL-USA-CLI/USA/24/0016069

PATIENT
  Age: 2 Year
  Sex: Female

DRUGS (3)
  1. JAVYGTOR [Suspect]
     Active Substance: SAPROPTERIN DIHYDROCHLORIDE
     Indication: Hyperphenylalaninaemia
     Dosage: TAKE TWO 100MG TABLETS AND MIX IN 5ML OF WATER MIX WELL AND TAKE WITH MEAL. TAKE WITHIN 15MINUTES OF
  2. ZARBEE COUGH MEDICINE [Concomitant]
     Indication: Nasopharyngitis
  3. ALBUTEROL SULFATE [Concomitant]
     Active Substance: ALBUTEROL SULFATE
     Indication: Product used for unknown indication

REACTIONS (1)
  - Nasopharyngitis [Not Recovered/Not Resolved]
